FAERS Safety Report 21075338 (Version 1)
Quarter: 2022Q3

REPORT INFORMATION
  Report Type: Spontaneous
  Country: CN (occurrence: CN)
  Receive Date: 20220713
  Receipt Date: 20220713
  Transmission Date: 20221026
  Serious: Yes (Hospitalization, Other)
  Sender: FDA-Public Use
  Company Number: None

PATIENT
  Age: 50 Year
  Sex: Female
  Weight: 71.5 kg

DRUGS (4)
  1. CYCLOPHOSPHAMIDE [Suspect]
     Active Substance: CYCLOPHOSPHAMIDE
     Indication: Breast cancer female
     Dosage: 1.05 G, 1X A WEEK, DROPS, (CYCLOPHOSPHAMIDE 1.05G + SODIUM CHLORIDE 100 ML) NEOADJUVANT CHEMOTHERAPY
     Route: 041
     Dates: start: 20220427
  2. SODIUM CHLORIDE [Suspect]
     Active Substance: SODIUM CHLORIDE
     Indication: Medication dilution
     Dosage: 100 ML, 1X A WEEK, (CYCLOPHOSPHAMIDE 1.05G + SODIUM CHLORIDE 100 ML)
     Route: 041
     Dates: start: 20220427
  3. SODIUM CHLORIDE [Suspect]
     Active Substance: SODIUM CHLORIDE
     Dosage: 250 ML, QD (EPIRUBICIN 175 MG + SODIUM CHLORIDE 250 ML)
     Route: 041
     Dates: start: 20220427
  4. EPIRUBICIN [Suspect]
     Active Substance: EPIRUBICIN
     Indication: Breast cancer female
     Dosage: 175 MG, QD,(EPIRUBICIN 175 MG + SODIUM CHLORIDE 250 ML) NEOADJUVANT THERAPY
     Route: 041
     Dates: start: 20220427

REACTIONS (3)
  - Pancytopenia [Recovering/Resolving]
  - Myelosuppression [Unknown]
  - Pallor [Unknown]

NARRATIVE: CASE EVENT DATE: 20220624
